FAERS Safety Report 11135961 (Version 4)
Quarter: 2015Q3

REPORT INFORMATION
  Report Type: Spontaneous
  Country: GB (occurrence: GB)
  Receive Date: 20150526
  Receipt Date: 20150706
  Transmission Date: 20151125
  Serious: Yes (Other)
  Sender: FDA-Public Use
  Company Number: GB-PFIZER INC-2015171602

PATIENT
  Age: 72 Year
  Sex: Male
  Weight: 79.9 kg

DRUGS (8)
  1. XELODA [Suspect]
     Active Substance: CAPECITABINE
     Indication: GASTRIC CANCER
     Dosage: 1150 MG, UNK
     Route: 048
     Dates: start: 20110202, end: 20110223
  2. EPIRUBICIN HCL [Suspect]
     Active Substance: EPIRUBICIN HYDROCHLORIDE
     Indication: GASTRIC CANCER
     Dosage: 100 MG, UNK
     Route: 042
     Dates: start: 20110202, end: 20110223
  3. ADCAL D3 [Concomitant]
     Active Substance: CALCIUM CARBONATE\CHOLECALCIFEROL
     Route: 048
  4. CISPLATIN. [Suspect]
     Active Substance: CISPLATIN
     Indication: GASTRIC CANCER
     Dosage: 115 MG, UNK
     Route: 042
     Dates: start: 20110202, end: 20110202
  5. AVASTIN [Suspect]
     Active Substance: BEVACIZUMAB
     Indication: GASTRIC CANCER
     Dosage: 600 MG
     Route: 042
     Dates: start: 20110202, end: 20110223
  6. FENOBRAT [Concomitant]
     Route: 048
  7. LOSARTAN. [Concomitant]
     Active Substance: LOSARTAN
     Route: 048
  8. FERROUS SULFATE [Concomitant]
     Active Substance: FERROUS SULFATE\FERROUS SULFATE, DRIED
     Route: 048

REACTIONS (1)
  - Pericarditis [Recovered/Resolved with Sequelae]

NARRATIVE: CASE EVENT DATE: 20110223
